FAERS Safety Report 17927504 (Version 1)
Quarter: 2020Q2

REPORT INFORMATION
  Report Type: Spontaneous
  Country: DE (occurrence: DE)
  Receive Date: 20200622
  Receipt Date: 20200622
  Transmission Date: 20200714
  Serious: Yes (Death)
  Sender: FDA-Public Use
  Company Number: PHHY2019DE194328

PATIENT
  Age: 76 Year
  Sex: Male
  Weight: 86 kg

DRUGS (2)
  1. DOCETAXEL. [Suspect]
     Active Substance: DOCETAXEL
     Indication: NON-SMALL CELL LUNG CANCER
     Dosage: 150 MG, QD
     Route: 065
     Dates: start: 20190724, end: 20190724
  2. BIBF 1120 [Suspect]
     Active Substance: NINTEDANIB
     Indication: NON-SMALL CELL LUNG CANCER
     Dosage: 400 MG, QD
     Route: 065
     Dates: start: 20190725, end: 20190806

REACTIONS (3)
  - Malignant pleural effusion [Fatal]
  - Neoplasm progression [Fatal]
  - Flatulence [Unknown]

NARRATIVE: CASE EVENT DATE: 20190802
